FAERS Safety Report 4532149-7 (Version None)
Quarter: 2004Q4

REPORT INFORMATION
  Report Type: 
  Country: None (occurrence: None)
  Receive Date: 20041220
  Receipt Date: 20041209
  Transmission Date: 20050328
  Serious: Yes (Other)
  Sender: FDA-Public Use
  Company Number: US-JNJFOC-20041203062

PATIENT
  Age: 39 Year
  Sex: Female

DRUGS (5)
  1. RISPERDAL [Suspect]
     Route: 049
  2. RISPERDAL [Suspect]
     Indication: OBSESSIVE-COMPULSIVE DISORDER
     Route: 049
  3. LITHIUM CARBONATE [Concomitant]
     Route: 049
  4. TOPAMAX [Concomitant]
     Indication: UNEVALUABLE EVENT
     Route: 049
  5. TEGRETOL [Concomitant]
     Route: 049

REACTIONS (13)
  - ABDOMINAL PAIN UPPER [None]
  - ABNORMAL BEHAVIOUR [None]
  - BLOOD GLUCOSE INCREASED [None]
  - BLOOD PROLACTIN INCREASED [None]
  - DEPRESSION [None]
  - DIARRHOEA [None]
  - FATIGUE [None]
  - GLOSSODYNIA [None]
  - MOOD ALTERED [None]
  - PITUITARY TUMOUR [None]
  - POLLAKIURIA [None]
  - TARDIVE DYSKINESIA [None]
  - THIRST [None]
